FAERS Safety Report 22099687 (Version 4)
Quarter: 2024Q4

REPORT INFORMATION
  Report Type: Spontaneous
  Country: US (occurrence: US)
  Receive Date: 20230315
  Receipt Date: 20241223
  Transmission Date: 20250114
  Serious: No
  Sender: PFIZER
  Company Number: US-PFIZER INC-PV202300047859

PATIENT
  Age: 80 Year
  Sex: Female

DRUGS (1)
  1. IBRANCE [Suspect]
     Active Substance: PALBOCICLIB
     Dosage: 75 MG, CYCLIC (DAILY, 3 WEEKS ON, 1 WEEK OFF/POQ DAY, 3 WEEKS ON 1 WEEK OFF)
     Route: 048

REACTIONS (2)
  - Hypersensitivity [Unknown]
  - Pruritus [Unknown]
